FAERS Safety Report 20150195 (Version 1)
Quarter: 2021Q4

REPORT INFORMATION
  Report Type: Report from Study
  Country: CA (occurrence: CA)
  Receive Date: 20211206
  Receipt Date: 20211206
  Transmission Date: 20220304
  Serious: Yes (Hospitalization, Other)
  Sender: FDA-Public Use
  Company Number: CA-SAARTEMIS-SAC202012100089

PATIENT
  Age: 70 Year
  Sex: Female

DRUGS (2)
  1. SARILUMAB [Suspect]
     Active Substance: SARILUMAB
     Indication: Rheumatoid arthritis
     Dosage: 200 MG, QOW
     Route: 058
     Dates: start: 20200115
  2. PREDNISONE [Concomitant]
     Active Substance: PREDNISONE
     Dosage: UNK

REACTIONS (6)
  - Sepsis [Recovered/Resolved]
  - Renal failure [Recovered/Resolved]
  - Pulse absent [Recovered/Resolved]
  - Blood pressure abnormal [Recovered/Resolved]
  - Urinary tract infection [Recovered/Resolved]
  - Renal colic [Recovering/Resolving]

NARRATIVE: CASE EVENT DATE: 20201208
